FAERS Safety Report 5815673-6 (Version None)
Quarter: 2008Q3

REPORT INFORMATION
  Report Type: 
  Country: None (occurrence: None)
  Receive Date: 20080716
  Receipt Date: 20080708
  Transmission Date: 20090109
  Serious: Yes (Hospitalization)
  Sender: FDA-Public Use
  Company Number: 2008AL004292

PATIENT
  Age: 51 Year
  Sex: Female
  Weight: 83.9154 kg

DRUGS (3)
  1. DIGOXIN [Suspect]
     Indication: ARRHYTHMIA
     Dosage: 0.125MG DAILY PO
     Route: 048
     Dates: start: 20080408, end: 20080428
  2. PREMARIN [Concomitant]
  3. EFFEXOR XR [Concomitant]

REACTIONS (4)
  - ABASIA [None]
  - DIZZINESS [None]
  - NAUSEA [None]
  - VERTIGO [None]
